FAERS Safety Report 6749531-X (Version None)
Quarter: 2010Q2

REPORT INFORMATION
  Report Type: 
  Country: None (occurrence: None)
  Receive Date: 20100601
  Receipt Date: 20100519
  Transmission Date: 20101027
  Serious: Yes (Other)
  Sender: FDA-Public Use
  Company Number: US-SANOFI-AVENTIS-2010SA029443

PATIENT
  Age: 46 Year
  Sex: Male

DRUGS (16)
  1. LOVENOX [Suspect]
     Route: 065
     Dates: start: 20091201, end: 20091201
  2. LOVENOX [Suspect]
     Route: 065
     Dates: start: 20100401, end: 20100401
  3. PLAVIX [Suspect]
     Route: 048
     Dates: start: 20091201, end: 20100401
  4. PLAVIX [Suspect]
     Route: 048
     Dates: start: 20080801, end: 20091201
  5. PLAVIX [Suspect]
     Route: 048
     Dates: start: 20100501
  6. ASPIRIN [Concomitant]
     Dates: start: 20080801, end: 20091201
  7. ASPIRIN [Concomitant]
     Dates: start: 20091201, end: 20100401
  8. ASPIRIN [Concomitant]
     Dates: start: 20100501
  9. HYZAAR [Concomitant]
     Dosage: 10/40MG
     Dates: start: 20080801
  10. SIMVASTATIN [Concomitant]
     Dates: start: 20080801
  11. HYDROCHLOROTHIAZIDE [Concomitant]
     Dates: start: 20080801
  12. NEBIVOLOL [Concomitant]
  13. OXYCODONE [Concomitant]
     Indication: PAIN
  14. PERCOCET [Concomitant]
  15. DEXAMETHASONE [Concomitant]
     Dosage: 0.75MG TABLET, TAPERING DOSE OVER 4 DAYS AFTER SURGERY
  16. VALIUM [Concomitant]
     Indication: MUSCLE SPASMS

REACTIONS (5)
  - BLOOD CREATININE INCREASED [None]
  - BLOOD POTASSIUM DECREASED [None]
  - BLOOD UREA INCREASED [None]
  - BRADYCARDIA [None]
  - INJECTION SITE HAEMATOMA [None]
